FAERS Safety Report 20966496 (Version 1)
Quarter: 2022Q2

REPORT INFORMATION
  Report Type: Report from Study
  Country: IT (occurrence: IT)
  Receive Date: 20220616
  Receipt Date: 20220616
  Transmission Date: 20220720
  Serious: Yes (Hospitalization)
  Sender: FDA-Public Use
  Company Number: None

PATIENT
  Age: 2 Year
  Sex: Female
  Weight: 11 kg

DRUGS (3)
  1. VINCRISTINE [Suspect]
     Active Substance: VINCRISTINE
     Indication: Renal neoplasm
     Dosage: VINCRISTINA TEVA
     Route: 040
     Dates: start: 20220429, end: 20220506
  2. COSMEGEN [Concomitant]
     Active Substance: DACTINOMYCIN
     Indication: Renal neoplasm
     Route: 040
     Dates: start: 20220429, end: 20220429
  3. DOXORUBICIN HYDROCHLORIDE [Concomitant]
     Active Substance: DOXORUBICIN HYDROCHLORIDE
     Indication: Renal neoplasm
     Route: 042
     Dates: start: 20220429, end: 20220429

REACTIONS (5)
  - Oral pain [Recovered/Resolved]
  - Vomiting [Recovered/Resolved]
  - Oral mucosal erythema [Recovered/Resolved]
  - Febrile neutropenia [Recovered/Resolved]
  - Hypogammaglobulinaemia [Recovered/Resolved]

NARRATIVE: CASE EVENT DATE: 20220507
